FAERS Safety Report 17199787 (Version 1)
Quarter: 2019Q4

REPORT INFORMATION
  Report Type: Spontaneous
  Country: GB (occurrence: GB)
  Receive Date: 20191226
  Receipt Date: 20191226
  Transmission Date: 20200122
  Serious: Yes (Hospitalization, Other)
  Sender: FDA-Public Use
  Company Number: GB-ALKEM LABORATORIES LIMITED-GB-ALKEM-2018-10623

PATIENT
  Age: 59 Year
  Sex: Female

DRUGS (2)
  1. CITALOPRAM HYDROCHLORIDE [Concomitant]
     Active Substance: CITALOPRAM HYDROCHLORIDE
     Indication: PRODUCT USED FOR UNKNOWN INDICATION
     Dosage: UNKNOWN
     Route: 065
  2. MYCOPHENOLATE MOFETIL. [Suspect]
     Active Substance: MYCOPHENOLATE MOFETIL
     Indication: PRODUCT USED FOR UNKNOWN INDICATION
     Dosage: 2.5 G, OD
     Route: 048
     Dates: start: 20180920, end: 20180926

REACTIONS (3)
  - Palpitations [Unknown]
  - Arrhythmia [Recovering/Resolving]
  - Sinus tachycardia [Unknown]

NARRATIVE: CASE EVENT DATE: 20180922
